FAERS Safety Report 9184008 (Version 1)
Quarter: 2013Q1

REPORT INFORMATION
  Report Type: Spontaneous
  Country: US (occurrence: US)
  Receive Date: 20130322
  Receipt Date: 20130322
  Transmission Date: 20140127
  Serious: No
  Sender: FDA-Public Use
  Company Number: US-BRISTOL-MYERS SQUIBB COMPANY-16696874

PATIENT
  Age: 74 Year
  Sex: Male
  Weight: 72.56 kg

DRUGS (3)
  1. ERBITUX [Suspect]
     Indication: COLORECTAL CANCER
     Dosage: NO OF TREATMENTS 2?LAST INF ON 13JUN12
  2. AVASTIN [Concomitant]
  3. 5-FLUOROURACIL [Concomitant]

REACTIONS (2)
  - Acne [Unknown]
  - Pruritus [Unknown]
